FAERS Safety Report 24146922 (Version 1)
Quarter: 2024Q3

REPORT INFORMATION
  Report Type: Spontaneous
  Country: CN (occurrence: CN)
  Receive Date: 20240729
  Receipt Date: 20240729
  Transmission Date: 20241016
  Serious: Yes (Other)
  Sender: PFIZER
  Company Number: CN-PFIZER INC-PV202400096818

PATIENT
  Age: 66 Year
  Sex: Male

DRUGS (7)
  1. SOLU-MEDROL [Suspect]
     Active Substance: METHYLPREDNISOLONE SODIUM SUCCINATE
     Indication: B-cell lymphoma
     Dosage: 60 MG, 1X/DAY
     Route: 041
     Dates: start: 20240706, end: 20240706
  2. MABTHERA [Suspect]
     Active Substance: RITUXIMAB
     Indication: B-cell lymphoma
     Dosage: 656 MG, 1X/DAY
     Route: 041
     Dates: start: 20240705, end: 20240705
  3. LENALIDOMIDE [Suspect]
     Active Substance: LENALIDOMIDE
     Indication: B-cell lymphoma
     Dosage: 25 MG, 1X/DAY
     Route: 048
     Dates: start: 20240718, end: 20240718
  4. CYCLOPHOSPHAMIDE [Suspect]
     Active Substance: CYCLOPHOSPHAMIDE
     Indication: B-cell lymphoma
     Dosage: 1312 MG, 1X/DAY
     Route: 041
     Dates: start: 20240706, end: 20240706
  5. VINDESINE SULFATE [Suspect]
     Active Substance: VINDESINE SULFATE
     Indication: B-cell lymphoma
     Dosage: 4 MG, 1X/DAY
     Route: 041
     Dates: start: 20240706, end: 20240706
  6. ZANUBRUTINIB [Suspect]
     Active Substance: ZANUBRUTINIB
     Indication: B-cell lymphoma
     Dosage: 160 MG, 2X/DAY
     Route: 048
     Dates: start: 20240724, end: 20240724
  7. DOXORUBICIN HYDROCHLORIDE [Suspect]
     Active Substance: DOXORUBICIN HYDROCHLORIDE
     Indication: B-cell lymphoma
     Dosage: 60 MG, 1X/DAY
     Route: 041
     Dates: start: 20240706, end: 20240706

REACTIONS (1)
  - Myelosuppression [Recovering/Resolving]

NARRATIVE: CASE EVENT DATE: 20240712
